FAERS Safety Report 18454865 (Version 1)
Quarter: 2020Q4

REPORT INFORMATION
  Report Type: Spontaneous
  Country: IT (occurrence: IT)
  Receive Date: 20201103
  Receipt Date: 20201103
  Transmission Date: 20210114
  Serious: Yes (Hospitalization, Other)
  Sender: FDA-Public Use
  Company Number: IT-SA-2020SA306978

PATIENT

DRUGS (1)
  1. AUBAGIO [Suspect]
     Active Substance: TERIFLUNOMIDE
     Indication: MULTIPLE SCLEROSIS
     Route: 048
     Dates: start: 20150630, end: 20200220

REACTIONS (4)
  - Lymphadenectomy [Recovered/Resolved with Sequelae]
  - Uterine cancer [Recovered/Resolved with Sequelae]
  - Salpingo-oophorectomy [Recovered/Resolved with Sequelae]
  - Hysterectomy [Recovered/Resolved with Sequelae]

NARRATIVE: CASE EVENT DATE: 20200311
